FAERS Safety Report 4842500-6 (Version None)
Quarter: 2005Q4

REPORT INFORMATION
  Report Type: 
  Country: None (occurrence: None)
  Receive Date: 20051201
  Receipt Date: 20051101
  Transmission Date: 20060501
  Serious: No
  Sender: FDA-Public Use
  Company Number: PHBS2005JP16092

PATIENT
  Age: 30 Year
  Sex: Female

DRUGS (5)
  1. LIORESAL [Suspect]
     Indication: CERVICOBRACHIAL SYNDROME
     Dosage: 5 MG/DAY
     Route: 048
     Dates: start: 20050815
  2. TERNELIN [Suspect]
     Indication: CERVICOBRACHIAL SYNDROME
     Dosage: 2 MG/DAY
     Route: 048
     Dates: start: 20041005
  3. DAI-KENCHU-TO [Suspect]
     Dosage: 15 G/DAY
     Route: 048
     Dates: start: 20041001
  4. CERCINE [Concomitant]
     Dosage: 2 MG/DAY
     Route: 048
  5. XYLOCAINE [Concomitant]
     Dates: start: 20051030

REACTIONS (2)
  - DRUG INTERACTION [None]
  - RASH [None]
